FAERS Safety Report 21567574 (Version 1)
Quarter: 2022Q4

REPORT INFORMATION
  Report Type: Spontaneous
  Country: US (occurrence: US)
  Receive Date: 20221108
  Receipt Date: 20221108
  Transmission Date: 20230112
  Serious: No
  Sender: FDA-Public Use
  Company Number: US-009507513-2210USA008574

PATIENT
  Sex: Female

DRUGS (1)
  1. KEYTRUDA [Suspect]
     Active Substance: PEMBROLIZUMAB
     Indication: Non-small cell lung cancer stage IV
     Dosage: 200 MILLIGRAM, Q3W

REACTIONS (5)
  - Stomatitis [Unknown]
  - Hypoaesthesia [Unknown]
  - Paraesthesia [Unknown]
  - Urinary tract infection [Unknown]
  - Thyroid hormones decreased [Unknown]
